FAERS Safety Report 16776257 (Version 3)
Quarter: 2019Q4

REPORT INFORMATION
  Report Type: Spontaneous
  Country: US (occurrence: US)
  Receive Date: 20190905
  Receipt Date: 20191202
  Transmission Date: 20200122
  Serious: No
  Sender: FDA-Public Use
  Company Number: US-PFIZER INC-2019379332

PATIENT
  Age: 13 Year
  Sex: Female
  Weight: 40.82 kg

DRUGS (2)
  1. GENOTROPIN [Suspect]
     Active Substance: SOMATROPIN
     Indication: HYPOPITUITARISM
     Dosage: 1.6 MG, DAILY
     Route: 058
     Dates: start: 201908
  2. GENOTROPIN [Suspect]
     Active Substance: SOMATROPIN
     Indication: GROWTH HORMONE DEFICIENCY

REACTIONS (4)
  - Injection site pain [Unknown]
  - Device breakage [Unknown]
  - Device issue [Unknown]
  - Poor quality device used [Unknown]
